FAERS Safety Report 6878135-3 (Version None)
Quarter: 2010Q2

REPORT INFORMATION
  Report Type: 
  Country: None (occurrence: None)
  Receive Date: 20100616
  Receipt Date: 20100310
  Transmission Date: 20101027
  Serious: No
  Sender: FDA-Public Use
  Company Number: DSA_42764_2010

PATIENT
  Sex: Female

DRUGS (6)
  1. XENAZINE [Suspect]
     Indication: HUNTINGTON'S CHOREA
     Dosage: 25 MG QD ORAL
     Route: 048
     Dates: start: 20100215
  2. DEPAKOTE [Concomitant]
  3. BACLOFEN [Concomitant]
  4. PROTONIX [Concomitant]
  5. KLONOPIN [Concomitant]
  6. BENZTROPINE MESYLATE [Concomitant]

REACTIONS (2)
  - GASTROOESOPHAGEAL REFLUX DISEASE [None]
  - NAUSEA [None]
